FAERS Safety Report 25873059 (Version 1)
Quarter: 2025Q4

REPORT INFORMATION
  Report Type: Report from Study
  Country: PK (occurrence: PK)
  Receive Date: 20251002
  Receipt Date: 20251002
  Transmission Date: 20260117
  Serious: Yes (Other)
  Sender: ROCHE
  Company Number: PK-ROCHE-10000396817

PATIENT
  Age: 58 Year
  Sex: Female
  Weight: 55 kg

DRUGS (1)
  1. AVASTIN [Suspect]
     Active Substance: BEVACIZUMAB
     Indication: Ovarian cancer
     Route: 042
     Dates: start: 20250101, end: 20250705

REACTIONS (4)
  - Metastases to gastrointestinal tract [Unknown]
  - Vomiting [Unknown]
  - Abdominal pain lower [Unknown]
  - Weight decreased [Unknown]

NARRATIVE: CASE EVENT DATE: 20250801
